FAERS Safety Report 15807280 (Version 1)
Quarter: 2019Q1

REPORT INFORMATION
  Report Type: Spontaneous
  Country: US (occurrence: US)
  Receive Date: 20190110
  Receipt Date: 20190110
  Transmission Date: 20190417
  Serious: No
  Sender: FDA-Public Use
  Company Number: US-SHIRE-US201900691

PATIENT
  Sex: Female
  Weight: 65.76 kg

DRUGS (4)
  1. GENTEAL MILD [Concomitant]
     Active Substance: HYPROMELLOSE 2910 (4000 MPA.S)
     Indication: DRY EYE
  2. XIIDRA [Suspect]
     Active Substance: LIFITEGRAST
     Indication: DRY EYE
     Dosage: 5% SOLUTION, 1 GTT, 2X/DAY:BID
     Route: 047
     Dates: start: 2017
  3. XIIDRA [Suspect]
     Active Substance: LIFITEGRAST
     Dosage: 5% SOLUTION, BOTH EYE, 1 GTT, AS REQ^D
     Route: 047
     Dates: start: 201812
  4. SYSTANE (HYPROMELLOSE 2910 (4000 MPA.S)) [Concomitant]
     Active Substance: HYPROMELLOSE 2910 (4000 MPA.S)
     Indication: DRY EYE

REACTIONS (4)
  - Drug ineffective [Not Recovered/Not Resolved]
  - Instillation site pain [Not Recovered/Not Resolved]
  - Instillation site reaction [Not Recovered/Not Resolved]
  - Vision blurred [Not Recovered/Not Resolved]

NARRATIVE: CASE EVENT DATE: 2018
